FAERS Safety Report 6213863-4 (Version None)
Quarter: 2009Q2

REPORT INFORMATION
  Report Type: 
  Country: None (occurrence: None)
  Receive Date: 20090602
  Receipt Date: 20090602
  Transmission Date: 20091009
  Serious: Yes (Other)
  Sender: FDA-Public Use
  Company Number: None

PATIENT
  Age: 54 Year
  Sex: Male
  Weight: 129.2752 kg

DRUGS (2)
  1. LISINOPRIL [Suspect]
     Indication: PROTEINURIA
     Dates: start: 20090523, end: 20090526
  2. LISINOPRIL [Suspect]
     Indication: TYPE 2 DIABETES MELLITUS
     Dates: start: 20090523, end: 20090526

REACTIONS (1)
  - URINARY TRACT INFECTION [None]
